FAERS Safety Report 16578325 (Version 1)
Quarter: 2019Q3

REPORT INFORMATION
  Report Type: Spontaneous
  Country: IN (occurrence: IN)
  Receive Date: 20190716
  Receipt Date: 20190716
  Transmission Date: 20191004
  Serious: Yes (Life-Threatening)
  Sender: FDA-Public Use
  Company Number: IN-FRESENIUS KABI-FK201907798

PATIENT
  Age: 67 Year
  Sex: Male

DRUGS (3)
  1. RIFAMPIN (MANUFACTURER UNKNOWN) [Suspect]
     Active Substance: RIFAMPIN
     Indication: LATENT TUBERCULOSIS
     Route: 065
  2. ETANERCEPT [Suspect]
     Active Substance: ETANERCEPT
     Indication: RHEUMATOID ARTHRITIS
     Route: 065
  3. ISONIAZID. [Suspect]
     Active Substance: ISONIAZID
     Indication: LATENT TUBERCULOSIS
     Route: 065

REACTIONS (1)
  - Myxoedema coma [Recovered/Resolved]
